FAERS Safety Report 8785700 (Version 3)
Quarter: 2012Q4

REPORT INFORMATION
  Report Type: 
  Country: FR (occurrence: FR)
  Receive Date: 20120914
  Receipt Date: 20121026
  Transmission Date: 20130627
  Serious: Yes (Hospitalization, Congenital Anomaly)
  Sender: FDA-Public Use
  Company Number: FR-JNJFOC-20120903619

PATIENT
  Age: 0 Year
  Sex: Female
  Weight: 2.81 kg

DRUGS (4)
  1. INTELENCE [Suspect]
     Indication: FOETAL EXPOSURE DURING PREGNANCY
     Route: 064
     Dates: end: 20120516
  2. PREZISTA [Suspect]
     Indication: FOETAL EXPOSURE DURING PREGNANCY
     Route: 064
     Dates: end: 20120516
  3. NORVIR [Suspect]
     Indication: FOETAL EXPOSURE DURING PREGNANCY
     Route: 064
     Dates: end: 20120516
  4. ISENTRESS [Suspect]
     Indication: FOETAL EXPOSURE DURING PREGNANCY
     Route: 064
     Dates: end: 20120516

REACTIONS (1)
  - Thrombocytopenia [Recovering/Resolving]
